FAERS Safety Report 8960432 (Version 2)
Quarter: 2013Q1

REPORT INFORMATION
  Report Type: Spontaneous
  Country: US (occurrence: US)
  Receive Date: 20121211
  Receipt Date: 20130319
  Transmission Date: 20140127
  Serious: Yes (Death)
  Sender: FDA-Public Use
  Company Number: US-PFIZER INC-2012308038

PATIENT
  Age: 18 Year
  Sex: Female

DRUGS (4)
  1. GENOTROPIN [Suspect]
     Indication: GROWTH HORMONE DEFICIENCY
     Dosage: 0.4 MG, 1X/DAY
     Route: 058
     Dates: start: 201111
  2. PREDNISONE [Concomitant]
     Indication: ADRENAL INSUFFICIENCY
     Dosage: UNK
  3. ORTHO CYCLEN [Concomitant]
     Indication: HYPOGONADISM
     Dosage: UNK
  4. KEPPRA [Concomitant]
     Indication: CONVULSION
     Dosage: UNK

REACTIONS (2)
  - Glioblastoma multiforme [Fatal]
  - Disease progression [Fatal]
